FAERS Safety Report 24771481 (Version 1)
Quarter: 2024Q4

REPORT INFORMATION
  Report Type: Spontaneous
  Country: GB (occurrence: GB)
  Receive Date: 20241224
  Receipt Date: 20241224
  Transmission Date: 20250115
  Serious: Yes (Other)
  Sender: MERCK
  Company Number: GB-009507513-2412GBR007498

PATIENT
  Age: 45 Year
  Sex: Male

DRUGS (1)
  1. PEMBROLIZUMAB [Suspect]
     Active Substance: PEMBROLIZUMAB
     Indication: Renal cell carcinoma
     Dosage: UNK

REACTIONS (4)
  - Portal vein thrombosis [Unknown]
  - Malaise [Unknown]
  - Hypervolaemia [Unknown]
  - Coagulopathy [Unknown]
